FAERS Safety Report 13589180 (Version 1)
Quarter: 2017Q2

REPORT INFORMATION
  Report Type: Spontaneous
  Country: US (occurrence: US)
  Receive Date: 20170526
  Receipt Date: 20170526
  Transmission Date: 20170830
  Serious: Yes (Other)
  Sender: FDA-Public Use
  Company Number: None

PATIENT
  Age: 30 Year
  Sex: Female
  Weight: 52.65 kg

DRUGS (6)
  1. VITAMIN D [Concomitant]
     Active Substance: CHOLECALCIFEROL
  2. ATIVAN [Concomitant]
     Active Substance: LORAZEPAM
  3. CLARITIN [Concomitant]
     Active Substance: LORATADINE
  4. SERTRALINE [Suspect]
     Active Substance: SERTRALINE HYDROCHLORIDE
     Indication: ANXIETY
     Dosage: ?          QUANTITY:1 TABLET(S);?
     Route: 048
  5. NASACORT [Concomitant]
     Active Substance: TRIAMCINOLONE ACETONIDE
  6. WOMEN^S MULTIVITAMIN [Concomitant]

REACTIONS (8)
  - Euphoric mood [None]
  - Disturbance in attention [None]
  - Decreased appetite [None]
  - Dry mouth [None]
  - Malaise [None]
  - Diarrhoea [None]
  - Insomnia [None]
  - Nausea [None]

NARRATIVE: CASE EVENT DATE: 20170428
